FAERS Safety Report 15978331 (Version 1)
Quarter: 2019Q1

REPORT INFORMATION
  Report Type: Spontaneous
  Country: BR (occurrence: BR)
  Receive Date: 20190219
  Receipt Date: 20190219
  Transmission Date: 20190418
  Serious: Yes (Other)
  Sender: FDA-Public Use
  Company Number: BR-SA-2018SA155584

PATIENT
  Sex: Female
  Weight: 60 kg

DRUGS (1)
  1. LANTUS [Suspect]
     Active Substance: INSULIN GLARGINE
     Indication: TYPE 1 DIABETES MELLITUS
     Dosage: 30 IU IN THE MORNING AND 12 IU AT NIGHT
     Route: 058
     Dates: start: 2004

REACTIONS (6)
  - Diabetic metabolic decompensation [Unknown]
  - Exposure during pregnancy [Unknown]
  - High risk pregnancy [Unknown]
  - Inappropriate schedule of product administration [Unknown]
  - Infertility female [Unknown]
  - Premature baby [Unknown]

NARRATIVE: CASE EVENT DATE: 2004
